FAERS Safety Report 8129071-6 (Version None)
Quarter: 2012Q1

REPORT INFORMATION
  Report Type: 
  Country: None (occurrence: None)
  Receive Date: 20120210
  Receipt Date: 20110927
  Transmission Date: 20120608
  Serious: Yes (Other)
  Sender: FDA-Public Use
  Company Number: US-BRISTOL-MYERS SQUIBB COMPANY-16033920

PATIENT
  Age: 67 Year
  Sex: Male

DRUGS (2)
  1. REMICADE [Suspect]
     Dosage: RECEIVED 1 INF
     Dates: start: 20070919, end: 20070919
  2. ORENCIA [Suspect]
     Indication: ARTHRITIS REACTIVE
     Dosage: RECENT INFUSION 20JUL11
     Route: 042
     Dates: start: 20110426, end: 20110830

REACTIONS (1)
  - BLADDER CANCER [None]
